FAERS Safety Report 14819901 (Version 1)
Quarter: 2018Q2

REPORT INFORMATION
  Report Type: Report from Study
  Country: IT (occurrence: IT)
  Receive Date: 20180427
  Receipt Date: 20180427
  Transmission Date: 20180711
  Serious: Yes (Hospitalization)
  Sender: FDA-Public Use
  Company Number: IT-ROCHE-2108864

PATIENT
  Age: 65 Year

DRUGS (3)
  1. CARBOPLATIN. [Suspect]
     Active Substance: CARBOPLATIN
     Indication: OVARIAN EPITHELIAL CANCER RECURRENT
     Dosage: AT A DOSE TO ACHIEVE AUC 5 ON DAY 1; DOSE: 228 UNIT NOT PROVIDED?DATE OF MOST RECENT DOSE PRIOR TO S
     Route: 042
     Dates: start: 20161010
  2. BEVACIZUMAB. [Suspect]
     Active Substance: BEVACIZUMAB
     Indication: OVARIAN EPITHELIAL CANCER RECURRENT
     Dosage: ON DAY 1; DOSE: 600 UNIT NOT PROVIDED?DATE OF MOST RECENT DOSE PRIOR TO SAE: 19/APR/2017
     Route: 042
     Dates: start: 20161010
  3. PEGYLATED LIPOSOMAL DOXORUBICIN [Suspect]
     Active Substance: DOXORUBICIN
     Indication: OVARIAN EPITHELIAL CANCER RECURRENT
     Dosage: ON DAY ; DOSE: 50 UNIT NOT PROVIDED?DATE OF MOST RECENT DOSE PRIOR TO SAE: 19/APR/2017
     Route: 042
     Dates: start: 20161010

REACTIONS (2)
  - Subileus [Recovered/Resolved]
  - Faecaloma [Recovered/Resolved]

NARRATIVE: CASE EVENT DATE: 20170203
